FAERS Safety Report 21360513 (Version 7)
Quarter: 2022Q4

REPORT INFORMATION
  Report Type: Spontaneous
  Country: US (occurrence: US)
  Receive Date: 20220921
  Receipt Date: 20221209
  Transmission Date: 20230112
  Serious: No
  Sender: FDA-Public Use
  Company Number: US-PFIZER INC-PV202200059632

PATIENT
  Age: 65 Year
  Sex: Female

DRUGS (2)
  1. IBRANCE [Suspect]
     Active Substance: PALBOCICLIB
     Indication: Breast neoplasm
     Dosage: 125 MG, CYCLIC
     Dates: end: 2022
  2. ANASTROZOLE [Concomitant]
     Active Substance: ANASTROZOLE
     Indication: Breast neoplasm
     Dosage: UNK

REACTIONS (10)
  - Product dose omission issue [Unknown]
  - Product dose omission in error [Unknown]
  - Diarrhoea [Unknown]
  - Fatigue [Unknown]
  - Neutrophil count abnormal [Unknown]
  - Breast discomfort [Unknown]
  - Breast pain [Unknown]
  - Intentional dose omission [Unknown]
  - Respiration abnormal [Unknown]
  - Neoplasm progression [Unknown]

NARRATIVE: CASE EVENT DATE: 20220101
